FAERS Safety Report 8559022-1 (Version None)
Quarter: 2012Q3

REPORT INFORMATION
  Report Type: 
  Country: None (occurrence: None)
  Receive Date: 20120802
  Receipt Date: 20120725
  Transmission Date: 20120928
  Serious: Yes (Hospitalization)
  Sender: FDA-Public Use
  Company Number: US-BIOGENIDEC-2012BI027320

PATIENT
  Sex: Female

DRUGS (1)
  1. AVONEX [Suspect]
     Indication: MULTIPLE SCLEROSIS
     Route: 030
     Dates: start: 20120514

REACTIONS (7)
  - BALANCE DISORDER [None]
  - DIZZINESS POSTURAL [None]
  - PAIN [None]
  - HEADACHE [None]
  - VISUAL IMPAIRMENT [None]
  - CHILLS [None]
  - MUSCULAR WEAKNESS [None]
